FAERS Safety Report 9038289 (Version 4)
Quarter: 2013Q2

REPORT INFORMATION
  Report Type: Report from Study
  Country: BR (occurrence: BR)
  Receive Date: 20130129
  Receipt Date: 20130531
  Transmission Date: 20140414
  Serious: Yes (Hospitalization, Other)
  Sender: FDA-Public Use
  Company Number: BR-ROCHE-1184444

PATIENT
  Age: 57 Year
  Sex: Female
  Weight: 62 kg

DRUGS (6)
  1. XOLAIR [Suspect]
     Indication: ASTHMA
     Route: 065
     Dates: start: 20121207
  2. XOLAIR [Suspect]
     Route: 065
     Dates: start: 20121207
  3. GABAPENTIN [Concomitant]
  4. PREDSIM [Concomitant]
  5. CLAVULIN [Concomitant]
  6. OXYGEN [Concomitant]

REACTIONS (6)
  - Dyspnoea [Unknown]
  - Asthenia [Recovering/Resolving]
  - Lung disorder [Recovering/Resolving]
  - Weight increased [Recovering/Resolving]
  - Speech disorder [Unknown]
  - Cough [Unknown]
